FAERS Safety Report 13855804 (Version 1)
Quarter: 2017Q3

REPORT INFORMATION
  Report Type: Other
  Country: NZ (occurrence: NZ)
  Receive Date: 20170810
  Receipt Date: 20170810
  Transmission Date: 20171127
  Serious: Yes (Other)
  Sender: FDA-Public Use
  Company Number: NZ-ASCEND THERAPEUTICS-2024461

PATIENT
  Age: 28 Year
  Sex: Female

DRUGS (11)
  1. POTASSIUM [Suspect]
     Active Substance: POTASSIUM
     Route: 065
  2. BLEOMYCIN [Suspect]
     Active Substance: BLEOMYCIN SULFATE
     Route: 065
  3. ETOPOSIDE. [Suspect]
     Active Substance: ETOPOSIDE
     Route: 065
  4. CARBOPLATIN. [Suspect]
     Active Substance: CARBOPLATIN
     Route: 065
  5. DOXORUBICIN [Suspect]
     Active Substance: DOXORUBICIN
     Route: 065
  6. ESTROGEL [Suspect]
     Active Substance: ESTRADIOL
     Indication: PREMATURE MENOPAUSE
     Route: 065
  7. COLESTIPOL [Concomitant]
     Active Substance: COLESTIPOL
     Route: 065
  8. DACARBAZINE. [Suspect]
     Active Substance: DACARBAZINE
     Route: 065
  9. FLUOXETINE [Concomitant]
     Active Substance: FLUOXETINE HYDROCHLORIDE
     Route: 065
  10. VINBLASTINE [Suspect]
     Active Substance: VINBLASTINE
     Route: 065
  11. IFOSFAMIDE. [Suspect]
     Active Substance: IFOSFAMIDE
     Route: 065

REACTIONS (6)
  - Vein disorder [Unknown]
  - Intussusception [Unknown]
  - Pulmonary oedema [Unknown]
  - Weight increased [Recovering/Resolving]
  - Postoperative ileus [Unknown]
  - Lymphoedema [Recovered/Resolved]

NARRATIVE: CASE EVENT DATE: 2015
